FAERS Safety Report 10441011 (Version 1)
Quarter: 2014Q3

REPORT INFORMATION
  Report Type: Spontaneous
  Country: US (occurrence: None)
  Receive Date: 20140908
  Receipt Date: 20140908
  Transmission Date: 20150326
  Serious: Yes (Life-Threatening, Hospitalization)
  Sender: FDA-Public Use
  Company Number: None

PATIENT
  Age: 88 Year
  Sex: Male
  Weight: 67.3 kg

DRUGS (3)
  1. VISMODEGIB [Suspect]
     Active Substance: VISMODEGIB
     Indication: MALIGNANT MELANOMA
     Dosage: 150 MG, EVERY DAY, PO.
     Dates: start: 20131102, end: 20131202
  2. AMOXICILLIN/CLAVULANATE [Suspect]
     Active Substance: AMOXICILLIN\CLAVULANATE POTASSIUM
     Indication: URINARY TRACT INFECTION
     Route: 048
     Dates: start: 20131116, end: 20131122
  3. VISMODEGIB [Suspect]
     Active Substance: VISMODEGIB
     Indication: BASAL CELL CARCINOMA
     Dosage: 150 MG, EVERY DAY, PO.
     Dates: start: 20131102, end: 20131202

REACTIONS (3)
  - Liver function test abnormal [None]
  - Jaundice [None]
  - Decreased appetite [None]

NARRATIVE: CASE EVENT DATE: 20131126
